FAERS Safety Report 7766268-9 (Version None)
Quarter: 2011Q3

REPORT INFORMATION
  Report Type: 
  Country: None (occurrence: None)
  Receive Date: 20110922
  Receipt Date: 20110916
  Transmission Date: 20111222
  Serious: Yes (Death, Hospitalization)
  Sender: FDA-Public Use
  Company Number: US-BIOGENIDEC-2010BI044886

PATIENT
  Age: 57 Year
  Sex: Female

DRUGS (14)
  1. TYSABRI [Suspect]
     Route: 042
     Dates: start: 20070217, end: 20101206
  2. MORPHINE [Concomitant]
     Indication: PAIN
     Dates: start: 20100424, end: 20110131
  3. FUROSEMIDE [Concomitant]
     Dates: end: 20110131
  4. GABAPENTIN [Concomitant]
     Dates: end: 20110131
  5. TYSABRI [Suspect]
     Indication: MULTIPLE SCLEROSIS
     Route: 042
     Dates: start: 20050216, end: 20050216
  6. MS CONTIN [Concomitant]
     Indication: PAIN
     Dates: start: 20070910, end: 20110131
  7. METFORMIN HCL [Concomitant]
     Dates: end: 20110131
  8. VITAMIN B COMPLEX CAP [Concomitant]
     Dates: end: 20110131
  9. SIMVASTATIN [Concomitant]
     Dates: end: 20110131
  10. SINGULAIR [Concomitant]
     Dates: end: 20110131
  11. APIDRA [Concomitant]
     Dates: end: 20110131
  12. ATENOLOL [Concomitant]
     Dates: end: 20110131
  13. LASIX [Concomitant]
     Dates: end: 20110131
  14. LANTUS [Concomitant]
     Dates: end: 20110131

REACTIONS (7)
  - HEADACHE [None]
  - FATIGUE [None]
  - BRONCHOPNEUMONIA [None]
  - SLEEP APNOEA SYNDROME [None]
  - CONFUSIONAL STATE [None]
  - MYOCARDIAL INFARCTION [None]
  - CORONARY ARTERY DISEASE [None]
